FAERS Safety Report 8560817-9 (Version None)
Quarter: 2012Q3

REPORT INFORMATION
  Report Type: 
  Country: None (occurrence: None)
  Receive Date: 20120727
  Receipt Date: 20120727
  Transmission Date: 20120928
  Serious: Yes (Hospitalization)
  Sender: FDA-Public Use
  Company Number: None

PATIENT
  Age: 67 Year
  Sex: Male
  Weight: 81.8 kg

DRUGS (6)
  1. M.V.I. [Concomitant]
  2. FISH OIL [Concomitant]
  3. XANAX [Concomitant]
  4. NAPROXEN (ALEVE) [Suspect]
     Indication: OSTEOARTHRITIS
     Dosage: 1200MG (6 X 2 DZ) DAILY PO CHRONIC
     Route: 048
  5. VITAMIN B-12 [Concomitant]
  6. BC POWDER [Suspect]
     Indication: OSTEOARTHRITIS
     Dosage: 1-2 Q4HR PRN PO CHRONIC
     Route: 048

REACTIONS (2)
  - DIVERTICULUM [None]
  - DIVERTICULUM INTESTINAL HAEMORRHAGIC [None]
